FAERS Safety Report 5730531-3 (Version None)
Quarter: 2008Q2

REPORT INFORMATION
  Report Type: 
  Country: None (occurrence: None)
  Receive Date: 20080507
  Receipt Date: 20080502
  Transmission Date: 20081010
  Serious: Yes (Other)
  Sender: FDA-Public Use
  Company Number: US-ASTRAZENECA-2008UW09126

PATIENT
  Age: 71 Year
  Sex: Female
  Weight: 69.4 kg

DRUGS (5)
  1. ARIMIDEX [Suspect]
     Indication: BREAST CANCER
     Route: 048
     Dates: start: 20080311
  2. LISINOPRIL [Concomitant]
  3. SYNTHROID [Concomitant]
  4. CALCIUM CITRATE [Concomitant]
  5. AMLODIPINE [Concomitant]

REACTIONS (4)
  - COORDINATION ABNORMAL [None]
  - DRY SKIN [None]
  - FEELING ABNORMAL [None]
  - MENTAL IMPAIRMENT [None]
